FAERS Safety Report 7399643-5 (Version None)
Quarter: 2011Q2

REPORT INFORMATION
  Report Type: 
  Country: None (occurrence: None)
  Receive Date: 20110407
  Receipt Date: 20100730
  Transmission Date: 20111010
  Serious: No
  Sender: FDA-Public Use
  Company Number: US-KINGPHARMUSA00001-K201000951

PATIENT
  Age: 30 Year
  Sex: Male

DRUGS (7)
  1. SKELAXIN [Suspect]
     Indication: TENSION HEADACHE
  2. ADVIL LIQUI-GELS [Concomitant]
     Indication: MIGRAINE
     Dosage: UNK
  3. SKELAXIN [Suspect]
     Indication: MIGRAINE
     Dosage: 800 MG, PRN (ABOUT QD AND MOSTLY QPM)
     Route: 048
     Dates: start: 20080101, end: 20080101
  4. SKELAXIN [Suspect]
     Indication: SINUS DISORDER
  5. TYLENOL SINUS [Concomitant]
     Indication: SINUS DISORDER
     Dosage: UNK
  6. ADVIL LIQUI-GELS [Concomitant]
     Indication: TENSION HEADACHE
  7. ZANTAC [Concomitant]
     Indication: GASTROOESOPHAGEAL REFLUX DISEASE
     Dosage: UNK

REACTIONS (1)
  - PAROSMIA [None]
